FAERS Safety Report 10051319 (Version 6)
Quarter: 2015Q3

REPORT INFORMATION
  Report Type: Spontaneous
  Country: US (occurrence: US)
  Receive Date: 20140401
  Receipt Date: 20150721
  Transmission Date: 20151125
  Serious: No
  Sender: FDA-Public Use
  Company Number: US-PFIZER INC-2014088897

PATIENT
  Age: 66 Year
  Sex: Female
  Weight: 87 kg

DRUGS (2)
  1. SUTENT [Suspect]
     Active Substance: SUNITINIB MALATE
     Indication: RENAL CELL CARCINOMA
     Dosage: 50 MG, 4 WEEKS ON AND 2 WEEKS OFF
     Dates: start: 20120223, end: 20150420
  2. DILTIAZEM [Concomitant]
     Active Substance: DILTIAZEM
     Indication: HYPERTENSION
     Dosage: 60 MG, 1X/DAY
     Dates: start: 2013

REACTIONS (7)
  - Hypoaesthesia [Recovered/Resolved]
  - Nerve compression [Recovered/Resolved]
  - Hypertension [Unknown]
  - Influenza like illness [Recovered/Resolved]
  - Lymphadenopathy [Recovered/Resolved]
  - Nausea [Recovered/Resolved]
  - Vomiting [Recovered/Resolved]

NARRATIVE: CASE EVENT DATE: 2013
